FAERS Safety Report 6973320-4 (Version None)
Quarter: 2010Q3

REPORT INFORMATION
  Report Type: 
  Country: None (occurrence: None)
  Receive Date: 20100907
  Receipt Date: 20100823
  Transmission Date: 20110219
  Serious: Yes (Death)
  Sender: FDA-Public Use
  Company Number: AE 2010-112

PATIENT
  Age: 62 Year
  Sex: Male

DRUGS (3)
  1. FAZACLO ODT [Suspect]
     Dosage: 200 MG DAILY; PO
     Route: 048
     Dates: start: 20080221, end: 20100331
  2. ABILIFY [Concomitant]
  3. DESMOPRESSIN ACETATE [Concomitant]

REACTIONS (2)
  - MYOCARDIAL INFARCTION [None]
  - SUDDEN DEATH [None]
